FAERS Safety Report 5704406-X (Version None)
Quarter: 2008Q2

REPORT INFORMATION
  Report Type: 
  Country: None (occurrence: None)
  Receive Date: 20080414
  Receipt Date: 20080411
  Transmission Date: 20081010
  Serious: Yes (Hospitalization, Disabling)
  Sender: FDA-Public Use
  Company Number: B0513162A

PATIENT
  Age: 87 Year
  Sex: Male
  Weight: 50 kg

DRUGS (14)
  1. ARIXTRA [Suspect]
     Indication: THROMBOSIS PROPHYLAXIS
     Dosage: 2.5MG PER DAY
     Route: 058
     Dates: start: 20080301, end: 20080314
  2. LENDORMIN [Concomitant]
     Indication: INSOMNIA
     Dosage: .25MG PER DAY
     Route: 048
     Dates: start: 20080314
  3. EVIPROSTAT [Concomitant]
     Indication: BENIGN PROSTATIC HYPERPLASIA
     Route: 048
     Dates: start: 20080314
  4. URINORM [Concomitant]
     Dosage: 50MG PER DAY
     Route: 048
     Dates: start: 20080314
  5. URALYT [Concomitant]
     Route: 048
     Dates: start: 20080314
  6. ARICEPT [Concomitant]
     Indication: DEMENTIA ALZHEIMER'S TYPE
     Dosage: 5MG PER DAY
     Route: 048
     Dates: start: 20080314
  7. PERDIPINE LA [Concomitant]
     Indication: HYPERTENSION
     Dosage: 80MG PER DAY
     Route: 048
  8. MYSLEE [Concomitant]
     Indication: INSOMNIA
     Route: 048
     Dates: start: 20080303, end: 20080314
  9. RACOL [Concomitant]
     Dosage: 400MG PER DAY
     Route: 048
     Dates: start: 20080311, end: 20080314
  10. RINDERON [Concomitant]
     Route: 031
  11. CEFAMEZIN [Concomitant]
     Dosage: 2G PER DAY
     Route: 042
     Dates: start: 20080228, end: 20080301
  12. CEFAMEZIN [Concomitant]
     Dosage: 2G PER DAY
     Route: 042
     Dates: start: 20080318, end: 20080325
  13. VEEN F [Concomitant]
     Dosage: 1000ML PER DAY
     Route: 042
     Dates: start: 20080228, end: 20080229
  14. VEEN F [Concomitant]
     Dosage: 1000ML PER DAY
     Route: 042
     Dates: start: 20080318, end: 20080325

REACTIONS (8)
  - AGGRESSION [None]
  - APHASIA [None]
  - BRAIN OEDEMA [None]
  - CEREBRAL HAEMORRHAGE [None]
  - DEPRESSED LEVEL OF CONSCIOUSNESS [None]
  - ORAL INTAKE REDUCED [None]
  - PARESIS [None]
  - VERBAL ABUSE [None]
